FAERS Safety Report 4555779-5 (Version None)
Quarter: 2005Q1

REPORT INFORMATION
  Report Type: 
  Country: None (occurrence: None)
  Receive Date: 20050112
  Receipt Date: 20040924
  Transmission Date: 20050727
  Serious: Yes (Other)
  Sender: FDA-Public Use
  Company Number: 200420606BWH

PATIENT
  Age: 51 Year
  Sex: Female

DRUGS (2)
  1. CIPRO [Suspect]
     Indication: DIVERTICULITIS
     Dosage: ORAL
     Route: 048
     Dates: start: 20040907, end: 20040909
  2. METRONIDAZOLE [Suspect]
     Indication: DIVERTICULITIS
     Dosage: ORAL
     Route: 048
     Dates: start: 20040907, end: 20040909

REACTIONS (5)
  - ARTHRALGIA [None]
  - HEPATITIS [None]
  - PYREXIA [None]
  - RASH [None]
  - VASCULITIS [None]
